FAERS Safety Report 24107399 (Version 1)
Quarter: 2024Q3

REPORT INFORMATION
  Report Type: Report from Study
  Country: US (occurrence: US)
  Receive Date: 20240718
  Receipt Date: 20240718
  Transmission Date: 20241017
  Serious: No
  Sender: SANDOZ
  Company Number: US-SANDOZ-SDZ2023US030852

PATIENT
  Sex: Male

DRUGS (2)
  1. OMNITROPE [Suspect]
     Active Substance: SOMATROPIN
     Indication: Hypopituitarism
     Dosage: 2 MG, QD
     Route: 058
     Dates: start: 20230903
  2. OMNITROPE [Suspect]
     Active Substance: SOMATROPIN
     Indication: Hypopituitarism
     Dosage: 2 MG, QD
     Route: 058
     Dates: start: 20230903

REACTIONS (4)
  - Injection site extravasation [Recovered/Resolved]
  - Product storage error [Unknown]
  - Device physical property issue [Recovered/Resolved]
  - Incorrect dose administered by product [Unknown]
